FAERS Safety Report 9677399 (Version 2)
Quarter: 2013Q4

REPORT INFORMATION
  Report Type: Spontaneous
  Country: US (occurrence: US)
  Receive Date: 20131108
  Receipt Date: 20131120
  Transmission Date: 20140711
  Serious: Yes (Other)
  Sender: FDA-Public Use
  Company Number: US-SA-2013SA114117

PATIENT
  Age: 78 Year
  Sex: Female

DRUGS (3)
  1. LANTUS SOLOSTAR [Suspect]
     Indication: TYPE 2 DIABETES MELLITUS
     Dosage: DOSE: 20-30 UNITS.
     Route: 051
     Dates: start: 2004
  2. NOVOLOG [Suspect]
     Route: 065
  3. SOLOSTAR [Concomitant]
     Indication: TYPE 2 DIABETES MELLITUS
     Dates: start: 2004

REACTIONS (12)
  - Venous insufficiency [Unknown]
  - Cataract [Unknown]
  - Visual acuity reduced [Unknown]
  - Deafness unilateral [Unknown]
  - Arthritis [Unknown]
  - Intervertebral disc disorder [Unknown]
  - Weight increased [Unknown]
  - Thyroid disorder [Unknown]
  - Blood glucose increased [Unknown]
  - Stress [Unknown]
  - Expired drug administered [Unknown]
  - Incorrect product storage [Unknown]
